FAERS Safety Report 14989239 (Version 1)
Quarter: 2018Q2

REPORT INFORMATION
  Report Type: Spontaneous
  Country: DE (occurrence: DE)
  Receive Date: 20180608
  Receipt Date: 20180608
  Transmission Date: 20180711
  Serious: Yes (Death)
  Sender: FDA-Public Use
  Company Number: DE-009507513-1806DEU002516

PATIENT
  Age: 62 Year
  Sex: Male

DRUGS (6)
  1. LACTULOSE. [Concomitant]
     Active Substance: LACTULOSE
     Indication: HEPATIC CIRRHOSIS
     Dosage: DAILY DOSE: 20 ML MILLILITRE(S) EVERY DAYS
     Route: 048
     Dates: start: 201606
  2. SEROQUEL [Concomitant]
     Active Substance: QUETIAPINE FUMARATE
     Indication: SCHIZOPHRENIA
     Dosage: DAILY DOSE: 400 MG MILLGRAM(S) EVERY DAYS
     Route: 048
     Dates: start: 2012
  3. AMISULPRIDE [Concomitant]
     Active Substance: AMISULPRIDE
     Indication: SCHIZOPHRENIA
     Dosage: DAILY DOSE: 200 MG MILLGRAM(S) EVERY DAYS
     Route: 048
     Dates: start: 201407
  4. JANUVIA [Suspect]
     Active Substance: SITAGLIPTIN PHOSPHATE
     Indication: TYPE 2 DIABETES MELLITUS
     Dosage: DAILY DOSE: 50 MG MILLGRAM(S) EVERY DAYS
     Route: 048
     Dates: start: 20180427
  5. SPIRONOLACTONE. [Concomitant]
     Active Substance: SPIRONOLACTONE
     Indication: HEPATIC CIRRHOSIS
     Dosage: DAILY DOSE: 50 MG MILLGRAM(S) EVERY 2 DAYS
     Route: 048
     Dates: start: 201606
  6. BISOPROLOL [Concomitant]
     Active Substance: BISOPROLOL
     Indication: HYPERTENSION
     Dosage: DAILY DOSE: 2.5 MG MILLGRAM(S) EVERY DAYS
     Route: 048
     Dates: start: 201207

REACTIONS (2)
  - Asthenia [Fatal]
  - Gait disturbance [Fatal]

NARRATIVE: CASE EVENT DATE: 20180509
